FAERS Safety Report 12693349 (Version 1)
Quarter: 2016Q3

REPORT INFORMATION
  Report Type: Spontaneous
  Country: BR (occurrence: BR)
  Receive Date: 20160829
  Receipt Date: 20160829
  Transmission Date: 20161109
  Serious: Yes (Hospitalization, Other)
  Sender: FDA-Public Use
  Company Number: BR-PFIZER INC-2016401572

PATIENT
  Sex: Male

DRUGS (1)
  1. FRONTAL XR [Suspect]
     Active Substance: ALPRAZOLAM
     Dosage: STRENGTH 0.5MG
     Dates: start: 2014

REACTIONS (4)
  - Emotional disorder [Unknown]
  - Epinephrine increased [Unknown]
  - Drug dependence [Unknown]
  - Feeling abnormal [Unknown]
